FAERS Safety Report 15657395 (Version 2)
Quarter: 2018Q4

REPORT INFORMATION
  Report Type: Spontaneous
  Country: GB (occurrence: GB)
  Receive Date: 20181126
  Receipt Date: 20181214
  Transmission Date: 20190205
  Serious: Yes (Other)
  Sender: FDA-Public Use
  Company Number: GB-SA-2018SA188596

PATIENT
  Sex: Female

DRUGS (1)
  1. LEMTRADA [Suspect]
     Active Substance: ALEMTUZUMAB
     Indication: MULTIPLE SCLEROSIS
     Dosage: UNK
     Route: 041
     Dates: start: 20180614

REACTIONS (7)
  - Rash [Unknown]
  - Dyspnoea [Unknown]
  - Steroid withdrawal syndrome [Unknown]
  - Tremor [Unknown]
  - Crying [Unknown]
  - Dyspepsia [Unknown]
  - Asthenia [Unknown]
